FAERS Safety Report 19176212 (Version 1)
Quarter: 2021Q2

REPORT INFORMATION
  Report Type: Spontaneous
  Country: US (occurrence: US)
  Receive Date: 20210423
  Receipt Date: 20210423
  Transmission Date: 20210717
  Serious: No
  Sender: FDA-Public Use
  Company Number: US-SEAGEN-2021SGN01296

PATIENT
  Sex: Female

DRUGS (3)
  1. TUKYSA [Suspect]
     Active Substance: TUCATINIB
     Indication: BREAST CANCER
     Route: 048
  2. CAPECITABINE. [Concomitant]
     Active Substance: CAPECITABINE
  3. TRASTUZUMAB. [Concomitant]
     Active Substance: TRASTUZUMAB

REACTIONS (4)
  - Alanine aminotransferase increased [Unknown]
  - Aspartate aminotransferase increased [Unknown]
  - Metastases to central nervous system [Unknown]
  - Blood bilirubin abnormal [Unknown]
